FAERS Safety Report 4855752-3 (Version None)
Quarter: 2005Q4

REPORT INFORMATION
  Report Type: 
  Country: None (occurrence: None)
  Receive Date: 20051215
  Receipt Date: 20051215
  Transmission Date: 20060501
  Serious: Yes (Life-Threatening, Hospitalization)
  Sender: FDA-Public Use
  Company Number: None

PATIENT
  Age: 64 Year
  Sex: Female

DRUGS (11)
  1. HERCEPTIN [Suspect]
     Indication: BREAST CANCER METASTATIC
     Dosage: 6 MG/KG EVERY 3 WEEKS IV
     Route: 042
     Dates: start: 20050908, end: 20050909
  2. AVASTIN [Suspect]
     Indication: BREAST CANCER METASTATIC
     Dosage: 10 MG/KG EVERY 3 WEEKS IV
     Route: 042
     Dates: start: 20050908, end: 20050909
  3. CYTOXAN [Suspect]
     Indication: BREAST CANCER METASTATIC
     Dosage: 50 MG/M2 DAILY PO
     Route: 048
     Dates: start: 20050908, end: 20050913
  4. ASPIRIN [Concomitant]
  5. FENTANYL [Concomitant]
  6. LISINOPRIL [Concomitant]
  7. TOPROL-XL [Concomitant]
  8. NORTRIPTYLINE HCL [Concomitant]
  9. PANTOPRAZOLE [Concomitant]
  10. PRAVASTATIN [Concomitant]
  11. NITROGLYCERIN [Concomitant]

REACTIONS (5)
  - ACUTE MYOCARDIAL INFARCTION [None]
  - CHEST DISCOMFORT [None]
  - DYSPNOEA [None]
  - ELECTROCARDIOGRAM T WAVE INVERSION [None]
  - NAUSEA [None]
